FAERS Safety Report 12510234 (Version 2)
Quarter: 2016Q3

REPORT INFORMATION
  Report Type: Spontaneous
  Country: US (occurrence: US)
  Receive Date: 20160629
  Receipt Date: 20160817
  Transmission Date: 20161109
  Serious: No
  Sender: FDA-Public Use
  Company Number: US-BAYER-2016-128227

PATIENT
  Age: 70 Year
  Sex: Female

DRUGS (3)
  1. AMPYRA [Suspect]
     Active Substance: DALFAMPRIDINE
     Indication: MULTIPLE SCLEROSIS
     Dosage: 10 MG, BID (Q12 HRS)
     Route: 048
     Dates: start: 201512
  2. AMPYRA [Suspect]
     Active Substance: DALFAMPRIDINE
     Indication: GAIT DISTURBANCE
  3. BETASERON [Suspect]
     Active Substance: INTERFERON BETA-1B
     Indication: MULTIPLE SCLEROSIS
     Dosage: 0.25 MG, UNK
     Dates: start: 201506, end: 201605

REACTIONS (6)
  - Injection site mass [None]
  - Injection site scab [None]
  - Asthenia [Recovered/Resolved]
  - Therapy cessation [None]
  - Rash macular [Recovered/Resolved]
  - Injection site bruising [None]

NARRATIVE: CASE EVENT DATE: 201605
